FAERS Safety Report 6532041-2 (Version None)
Quarter: 2009Q4

REPORT INFORMATION
  Report Type: 
  Country: None (occurrence: None)
  Receive Date: 20091224
  Receipt Date: 20090923
  Transmission Date: 20100525
  Serious: Yes (Other)
  Sender: FDA-Public Use
  Company Number: 8052490

PATIENT
  Age: 38 Year
  Sex: Female
  Weight: 90.9 kg

DRUGS (2)
  1. XYZAL [Suspect]
     Indication: SINUSITIS
     Dosage: 5 MG /D PO
     Route: 048
     Dates: start: 20080801, end: 20080101
  2. MULTI-VITAMIN [Concomitant]

REACTIONS (3)
  - ANGIOEDEMA [None]
  - PRURITUS [None]
  - URTICARIA [None]
